FAERS Safety Report 19568252 (Version 1)
Quarter: 2021Q3

REPORT INFORMATION
  Report Type: Spontaneous
  Country: US (occurrence: US)
  Receive Date: 20210714
  Receipt Date: 20210714
  Transmission Date: 20211014
  Serious: No
  Sender: FDA-Public Use
  Company Number: US-NOVOPROD-807983

PATIENT
  Sex: Male
  Weight: 136.05 kg

DRUGS (2)
  1. RYBELSUS [Suspect]
     Active Substance: SEMAGLUTIDE
     Indication: PRODUCT USED FOR UNKNOWN INDICATION
     Dosage: 3 MG, QD IN AM
     Route: 048
     Dates: start: 20210101, end: 20210201
  2. RYBELSUS [Suspect]
     Active Substance: SEMAGLUTIDE
     Dosage: 12 MG (FOUR 3 MG TABS), QD IN AM
     Route: 048
     Dates: start: 20210202

REACTIONS (2)
  - Blood glucose increased [Unknown]
  - Weight decreased [Unknown]
